FAERS Safety Report 24384968 (Version 1)
Quarter: 2024Q4

REPORT INFORMATION
  Report Type: Spontaneous
  Country: CA (occurrence: CA)
  Receive Date: 20241001
  Receipt Date: 20241001
  Transmission Date: 20250114
  Serious: Yes (Death)
  Sender: FRESENIUS KABI
  Company Number: CA-FreseniusKabi-FK202414277

PATIENT
  Age: 61 Year
  Sex: Male
  Weight: 94 kg

DRUGS (5)
  1. ETOPOSIDE [Suspect]
     Active Substance: ETOPOSIDE
     Indication: Testis cancer
     Dosage: FORM OF ADMIN-LIQUID INTRAVENOUS
     Route: 042
  2. ETOPOSIDE [Suspect]
     Active Substance: ETOPOSIDE
     Indication: Seminoma
  3. CISPLATIN [Suspect]
     Active Substance: CISPLATIN
     Indication: Testis cancer
     Dosage: FOA-SOLUTION INTRAVENOUS
     Route: 042
  4. CISPLATIN [Suspect]
     Active Substance: CISPLATIN
     Indication: Seminoma
  5. BLEOMYCIN SULFATE [Concomitant]
     Active Substance: BLEOMYCIN SULFATE
     Indication: Product used for unknown indication
     Dosage: FOA-INJECTION

REACTIONS (2)
  - Febrile neutropenia [Fatal]
  - Sepsis [Fatal]
